FAERS Safety Report 12873115 (Version 2)
Quarter: 2016Q4

REPORT INFORMATION
  Report Type: Report from Study
  Country: US (occurrence: US)
  Receive Date: 20161021
  Receipt Date: 20161114
  Transmission Date: 20170207
  Serious: Yes (Death, Hospitalization)
  Sender: FDA-Public Use
  Company Number: US-TAIHO ONCOLOGY INC-EU-2016-02687

PATIENT
  Age: 63 Year
  Sex: Male

DRUGS (14)
  1. COREG [Concomitant]
     Active Substance: CARVEDILOL
     Dosage: WITH MEALS
     Route: 048
     Dates: start: 20160324
  2. GLUCOTROL [Concomitant]
     Active Substance: GLIPIZIDE
     Route: 048
     Dates: start: 20160307
  3. ZOFRAN [Concomitant]
     Active Substance: ONDANSETRON HYDROCHLORIDE
     Indication: NAUSEA
     Dosage: AS NEEDED
     Route: 048
     Dates: start: 20160502
  4. LIPITOR [Concomitant]
     Active Substance: ATORVASTATIN CALCIUM
     Route: 048
     Dates: start: 20160307
  5. LONSURF [Suspect]
     Active Substance: TIPIRACIL HYDROCHLORIDE\TRIFLURIDINE
     Indication: COLON CANCER
     Route: 048
     Dates: start: 20160914
  6. HUMALOG MIX [Concomitant]
     Active Substance: INSULIN LISPRO
     Dosage: (75/25) 0.1 MLS (10 UNITS TOTAL) WITH MEALS
     Route: 058
     Dates: start: 20160801
  7. PRILOSEC [Concomitant]
     Active Substance: OMEPRAZOLE MAGNESIUM
     Route: 048
     Dates: start: 20160307
  8. MYCOSTATIN [Concomitant]
     Active Substance: NYSTATIN
     Dates: start: 20160729
  9. ACETYLSALICYLIC ACID [Concomitant]
     Active Substance: ASPIRIN
     Route: 048
  10. GLUCOPHAGE [Concomitant]
     Active Substance: METFORMIN HYDROCHLORIDE
     Dosage: WITH MEALS
     Route: 048
     Dates: start: 20160509
  11. PHENERGAN [Concomitant]
     Active Substance: PROMETHAZINE HYDROCHLORIDE
     Indication: NAUSEA
     Dosage: AS NEEDED
     Route: 048
     Dates: start: 20160502
  12. LOFIBRA/TRIGLIDE [Concomitant]
     Route: 048
     Dates: start: 20160307
  13. NORCO [Concomitant]
     Active Substance: ACETAMINOPHEN\HYDROCODONE BITARTRATE
     Indication: PAIN
     Dosage: 10-325 MG; 1 TO 2 TABLETS EVERY 6 HRS AS NEEDED
     Route: 048
     Dates: start: 20160818
  14. CIPRO [Concomitant]
     Active Substance: CIPROFLOXACIN HYDROCHLORIDE
     Indication: PYREXIA

REACTIONS (11)
  - Cardiac arrest [Unknown]
  - General physical health deterioration [Unknown]
  - Pneumonia aspiration [Unknown]
  - Nausea [Not Recovered/Not Resolved]
  - Anaemia [Unknown]
  - Vomiting [Not Recovered/Not Resolved]
  - Hypotension [Unknown]
  - Sepsis [Fatal]
  - Haematemesis [Unknown]
  - Gastrointestinal haemorrhage [Unknown]
  - Abdominal pain [Unknown]

NARRATIVE: CASE EVENT DATE: 201609
